FAERS Safety Report 17351742 (Version 1)
Quarter: 2020Q1

REPORT INFORMATION
  Report Type: Spontaneous
  Country: DE (occurrence: DE)
  Receive Date: 20200130
  Receipt Date: 20200130
  Transmission Date: 20200409
  Serious: Yes (Death, Hospitalization, Other)
  Sender: FDA-Public Use
  Company Number: NVSC2020DE021586

PATIENT
  Age: 44 Year
  Sex: Female

DRUGS (6)
  1. PREDNISOLONE. [Suspect]
     Active Substance: PREDNISOLONE
     Indication: IMMUNOSUPPRESSANT DRUG THERAPY
  2. BASILIXIMAB [Suspect]
     Active Substance: BASILIXIMAB
     Indication: IMMUNOSUPPRESSANT DRUG THERAPY
  3. TACROLIMUS. [Suspect]
     Active Substance: TACROLIMUS
     Indication: IMMUNOSUPPRESSANT DRUG THERAPY
  4. PREDNISOLONE. [Suspect]
     Active Substance: PREDNISOLONE
     Indication: LIVER TRANSPLANT
     Dosage: 500 MG
     Route: 065
  5. BASILIXIMAB [Suspect]
     Active Substance: BASILIXIMAB
     Indication: LIVER TRANSPLANT
     Dosage: 20 MG
     Route: 042
  6. TACROLIMUS. [Suspect]
     Active Substance: TACROLIMUS
     Indication: LIVER TRANSPLANT
     Dosage: 20 MG
     Route: 065

REACTIONS (19)
  - Gastroenteritis [Unknown]
  - Somnolence [Unknown]
  - Acute kidney injury [Unknown]
  - Product use in unapproved indication [Unknown]
  - Haemorrhage [Unknown]
  - Septic encephalopathy [Unknown]
  - Hyperkalaemia [Unknown]
  - Enterococcal infection [Unknown]
  - Cytomegalovirus infection [Unknown]
  - Visual impairment [Recovering/Resolving]
  - Aspergillus infection [Fatal]
  - Transplant rejection [Fatal]
  - Overdose [Unknown]
  - Pneumonia [Unknown]
  - Partial seizures [Unknown]
  - Cerebral disorder [Unknown]
  - Brain abscess [Unknown]
  - Peripheral artery thrombosis [Unknown]
  - Blood bilirubin increased [Unknown]
